FAERS Safety Report 4332437-3 (Version None)
Quarter: 2004Q1

REPORT INFORMATION
  Report Type: 
  Country: None (occurrence: None)
  Receive Date: 20040329
  Receipt Date: 20031204
  Transmission Date: 20041129
  Serious: No
  Sender: FDA-Public Use
  Company Number: 03P-163-0242556-00

PATIENT
  Age: 80 Year
  Sex: Female

DRUGS (11)
  1. HUMIRA [Suspect]
     Indication: RHEUMATOID ARTHRITIS
     Dosage: 40 MG, 1 IN 2 WK, SUBCUTANEOUS
     Route: 058
     Dates: start: 20031022
  2. PREDNISONE [Concomitant]
  3. LEVOTHYROXINE SODIUM [Concomitant]
  4. METOPROLOL SUCCINATE [Concomitant]
  5. RISEDRONATE SODIUM [Concomitant]
  6. ALBUTEROL SULFATE [Concomitant]
  7. PANTOPRAZOLE [Concomitant]
  8. DIAZEPAM [Concomitant]
  9. LATANOPROST [Concomitant]
  10. BRIMONIDINE TARTRATE [Concomitant]
  11. OXYGEN [Concomitant]

REACTIONS (1)
  - VERTIGO [None]
